FAERS Safety Report 7471581-9 (Version None)
Quarter: 2011Q2

REPORT INFORMATION
  Report Type: 
  Country: None (occurrence: None)
  Receive Date: 20110511
  Receipt Date: 20110302
  Transmission Date: 20111010
  Serious: Yes (Other)
  Sender: FDA-Public Use
  Company Number: US-BAYER-201036233NA

PATIENT
  Age: 31 Year
  Sex: Female
  Weight: 49.887 kg

DRUGS (17)
  1. DROSPIRENONE AND ETHINYL ESTRADIOL [Suspect]
  2. HYDROCODONE BITARTRATE AND ACETAMINOPHEN [Concomitant]
     Route: 048
  3. WELCHOL [Concomitant]
     Dosage: 625 MG, UNK
     Route: 048
     Dates: start: 20090504
  4. DENAVIR [Concomitant]
     Dosage: 1 %, UNK
     Route: 061
  5. ADVIL LIQUI-GELS [Concomitant]
  6. DROSPIRENONE AND ETHINYL ESTRADIOL [Suspect]
     Indication: PREMENSTRUAL SYNDROME
  7. ALPRAZOLAM [Concomitant]
     Dosage: 0.5 MG, UNK
     Route: 048
     Dates: start: 20080625, end: 20081213
  8. PRISTIQ [Concomitant]
     Dosage: UNK
     Dates: start: 20090101
  9. YAZ [Suspect]
  10. CIPROFLOXACIN [Concomitant]
     Dosage: UNK
     Route: 048
  11. YASMIN [Suspect]
     Indication: CONTRACEPTION
     Route: 048
     Dates: start: 20080301, end: 20080801
  12. DROSPIRENONE AND ETHINYL ESTRADIOL [Suspect]
     Indication: ACNE
  13. YAZ [Suspect]
     Indication: ACNE
  14. YAZ [Suspect]
     Indication: PREMENSTRUAL SYNDROME
  15. NEXIUM [Concomitant]
     Dosage: UNK
     Dates: start: 20090101
  16. DROSPIRENONE AND ETHINYL ESTRADIOL [Suspect]
     Indication: CONTRACEPTION
     Route: 048
     Dates: start: 20080901, end: 20090701
  17. YAZ [Suspect]
     Indication: CONTRACEPTION

REACTIONS (2)
  - CHOLECYSTITIS CHRONIC [None]
  - CHOLELITHIASIS [None]
